FAERS Safety Report 8838601 (Version 1)
Quarter: 2012Q4

REPORT INFORMATION
  Report Type: 
  Country: US (occurrence: US)
  Receive Date: 20121012
  Receipt Date: 20121012
  Transmission Date: 20130627
  Serious: Yes (Death)
  Sender: FDA-Public Use
  Company Number: US-ASTRAZENECA-2012SE77282

PATIENT
  Age: 57 Year
  Sex: Female

DRUGS (10)
  1. QUETIAPINE [Suspect]
     Route: 048
  2. ETHANOL [Suspect]
  3. CITALOPRAM [Suspect]
  4. LAMOTRIGINE [Suspect]
  5. MEMANTINE [Suspect]
  6. TRAZODONE [Suspect]
  7. VERAPAMIL [Suspect]
  8. KEPPRA [Suspect]
  9. DIPHENHYDRAMINE [Suspect]
  10. UNSPECIFIED INGREDIENT [Suspect]

REACTIONS (3)
  - Completed suicide [Fatal]
  - Intentional overdose [Fatal]
  - Toxicity to various agents [Fatal]
